FAERS Safety Report 11540032 (Version 1)
Quarter: 2015Q3

REPORT INFORMATION
  Report Type: Spontaneous
  Country: IT (occurrence: IT)
  Receive Date: 20150923
  Receipt Date: 20150923
  Transmission Date: 20151125
  Serious: Yes (Other)
  Sender: FDA-Public Use
  Company Number: IT-FRI-1000079635

PATIENT
  Age: 41 Year
  Sex: Female

DRUGS (2)
  1. NEBIVOLOL. [Suspect]
     Active Substance: NEBIVOLOL
     Indication: ACCELERATED HYPERTENSION
     Dosage: 1 DOSAGE FORMS
     Route: 048
     Dates: start: 20141023
  2. EUTIROX [Concomitant]
     Active Substance: LEVOTHYROXINE SODIUM

REACTIONS (1)
  - Erythema [Recovering/Resolving]

NARRATIVE: CASE EVENT DATE: 20141024
